FAERS Safety Report 6319481-1 (Version None)
Quarter: 2009Q3

REPORT INFORMATION
  Report Type: 
  Country: None (occurrence: None)
  Receive Date: 20090822
  Receipt Date: 20080910
  Transmission Date: 20100115
  Serious: No
  Sender: FDA-Public Use
  Company Number: US-ABBOTT-08P-163-0475364-00

PATIENT
  Sex: Female
  Weight: 115.77 kg

DRUGS (12)
  1. NIASPAN [Suspect]
     Indication: BLOOD TRIGLYCERIDES INCREASED
     Dosage: AT BEDTIME
     Route: 048
     Dates: start: 20080902
  2. PREGABALIN [Concomitant]
     Indication: PAIN
     Route: 048
  3. TRAMADOL [Concomitant]
     Indication: NEUROPATHY PERIPHERAL
     Route: 048
  4. OXYBUTYNIN [Concomitant]
     Indication: HYPERTONIC BLADDER
     Route: 048
  5. LANSOPRAZOLE [Concomitant]
     Indication: GASTROOESOPHAGEAL REFLUX DISEASE
     Route: 048
  6. NAPROXEN [Concomitant]
     Indication: PAIN
     Route: 048
  7. PREVACOL [Concomitant]
     Indication: DRUG USE FOR UNKNOWN INDICATION
     Route: 048
  8. BUSPIRONE HCL [Concomitant]
     Indication: ANXIETY
     Route: 048
  9. LISINOPRIL [Concomitant]
     Indication: HYPERTENSION
     Route: 048
  10. HYDROCHLOROTHIAZIDE [Concomitant]
     Indication: HYPERTENSION
     Route: 048
  11. CLONIDINE [Concomitant]
     Indication: HYPERTENSION
     Route: 048
  12. SERTRALINE [Concomitant]
     Indication: DEPRESSION
     Route: 048

REACTIONS (5)
  - ABDOMINAL PAIN UPPER [None]
  - CONSTIPATION [None]
  - DIARRHOEA [None]
  - FATIGUE [None]
  - IRRITABILITY [None]
